FAERS Safety Report 9320955 (Version 1)
Quarter: 2013Q2

REPORT INFORMATION
  Report Type: Report from Study
  Country: GB (occurrence: GB)
  Receive Date: 20130531
  Receipt Date: 20130531
  Transmission Date: 20140414
  Serious: Yes (Death)
  Sender: FDA-Public Use
  Company Number: GB-ROCHE-1061419

PATIENT
  Sex: Female

DRUGS (2)
  1. RITUXIMAB [Suspect]
     Indication: RHEUMATOID ARTHRITIS
     Route: 065
     Dates: start: 20100504
  2. MYCOPHENOLATE MOFETIL [Concomitant]

REACTIONS (4)
  - Respiratory failure [Fatal]
  - Lower respiratory tract infection [Fatal]
  - Interstitial lung disease [Fatal]
  - Scleroderma [Fatal]
